FAERS Safety Report 12879626 (Version 2)
Quarter: 2016Q4

REPORT INFORMATION
  Report Type: Spontaneous
  Country: BG (occurrence: BG)
  Receive Date: 20161025
  Receipt Date: 20161103
  Transmission Date: 20170207
  Serious: Yes (Hospitalization)
  Sender: FDA-Public Use
  Company Number: BG-ROCHE-1845902

PATIENT
  Age: 47 Year
  Sex: Female
  Weight: 59 kg

DRUGS (2)
  1. ROACTEMRA [Suspect]
     Active Substance: TOCILIZUMAB
     Indication: RHEUMATOID ARTHRITIS
     Dosage: ROACTEMRA 162 MG C.C. ONCE WEEKLY
     Route: 058
     Dates: start: 20150601, end: 201604
  2. ASPIRIN PROTECT 100 [Concomitant]
     Active Substance: ASPIRIN
     Dosage: ASPIRIN PROTECT 100 MG. X 1 TABL. DAILY
     Route: 048
     Dates: start: 2016

REACTIONS (1)
  - Ovarian cancer [Recovered/Resolved]

NARRATIVE: CASE EVENT DATE: 20160607
